FAERS Safety Report 6506668-8 (Version None)
Quarter: 2009Q4

REPORT INFORMATION
  Report Type: 
  Country: None (occurrence: None)
  Receive Date: 20091216
  Receipt Date: 20091201
  Transmission Date: 20100525
  Serious: No
  Sender: FDA-Public Use
  Company Number: SPI200900396

PATIENT
  Sex: Female

DRUGS (1)
  1. AMITIZA [Suspect]
     Indication: CONSTIPATION
     Dosage: 2 DOSES, ORAL
     Route: 048

REACTIONS (3)
  - CONSTIPATION [None]
  - COUGH [None]
  - DYSPNOEA [None]
